FAERS Safety Report 8541832 (Version 3)
Quarter: 2013Q2

REPORT INFORMATION
  Report Type: Report from Study
  Country: DE (occurrence: DE)
  Receive Date: 20120502
  Receipt Date: 20130621
  Transmission Date: 20140414
  Serious: Yes (Other)
  Sender: FDA-Public Use
  Company Number: DE-ACTELION-A-US2012-64884

PATIENT
  Age: 51 Year
  Sex: Female

DRUGS (6)
  1. VENTAVIS [Suspect]
     Indication: PULMONARY ARTERIAL HYPERTENSION
     Dosage: 2.5 UG, Q4H
     Route: 055
     Dates: start: 20110104, end: 20120405
  2. BISOHEXAL [Suspect]
     Route: 048
  3. REVATIO [Concomitant]
  4. IBUPROFEN RETARD [Concomitant]
  5. PANTOPRAZOL [Concomitant]
  6. ENBREL [Concomitant]

REACTIONS (3)
  - Lymphadenopathy [Recovering/Resolving]
  - Gingivitis [Recovered/Resolved]
  - Tooth extraction [Recovered/Resolved]
